FAERS Safety Report 23735929 (Version 1)
Quarter: 2024Q2

REPORT INFORMATION
  Report Type: Spontaneous
  Country: CN (occurrence: CN)
  Receive Date: 20240412
  Receipt Date: 20240412
  Transmission Date: 20240716
  Serious: Yes (Other)
  Sender: FDA-Public Use
  Company Number: CN-AMGEN-CHNSP2024071375

PATIENT
  Age: 65 Year
  Sex: Female

DRUGS (3)
  1. REPATHA [Suspect]
     Active Substance: EVOLOCUMAB
     Indication: Cervix neoplasm
     Dosage: 140 MILLIGRAM (FREQUENCY: 1)
     Route: 058
     Dates: start: 20240117, end: 20240117
  2. REPATHA [Suspect]
     Active Substance: EVOLOCUMAB
     Indication: Herpes zoster disseminated
  3. REPATHA [Suspect]
     Active Substance: EVOLOCUMAB
     Indication: Neuralgia

REACTIONS (2)
  - Myelosuppression [Recovering/Resolving]
  - Gastrointestinal disorder [Recovering/Resolving]

NARRATIVE: CASE EVENT DATE: 20240117
